FAERS Safety Report 19080866 (Version 1)
Quarter: 2021Q1

REPORT INFORMATION
  Report Type: Other
  Country: FR (occurrence: FR)
  Receive Date: 20210331
  Receipt Date: 20210331
  Transmission Date: 20210420
  Serious: Yes (Life-Threatening, Other)
  Sender: FDA-Public Use
  Company Number: FR-VALIDUS PHARMACEUTICALS LLC-FR-2021VAL000958

PATIENT
  Age: 53 Year
  Sex: Female

DRUGS (13)
  1. PIPERACILLIN SODIUM [Suspect]
     Active Substance: PIPERACILLIN SODIUM
     Indication: ALLERGY TEST
     Dosage: UNK
     Route: 023
     Dates: start: 20180328, end: 20180328
  2. MONOCRIXO [Concomitant]
     Active Substance: TRAMADOL HYDROCHLORIDE
     Indication: PRODUCT USED FOR UNKNOWN INDICATION
     Dosage: UNK
  3. AMOXICILLIN. [Suspect]
     Active Substance: AMOXICILLIN
     Indication: ALLERGY TEST
     Dosage: UNK
     Route: 023
     Dates: start: 20180328, end: 20180328
  4. CEFTRIAXONE SODIUM. [Suspect]
     Active Substance: CEFTRIAXONE SODIUM
     Indication: ALLERGY TEST
     Dosage: UNK
     Route: 023
     Dates: start: 20180328, end: 20180328
  5. CEFIXIME. [Suspect]
     Active Substance: CEFIXIME
     Indication: ALLERGY TEST
     Dosage: 176 MG, TOTAL
     Route: 048
     Dates: start: 20180328, end: 20180328
  6. TAZOBACTAM [Suspect]
     Active Substance: TAZOBACTAM
     Indication: ALLERGY TEST
     Dosage: UNK
     Route: 023
     Dates: start: 20180328, end: 20180328
  7. PENICILLIN G SODIUM. [Suspect]
     Active Substance: PENICILLIN G SODIUM
     Indication: ALLERGY TEST
     Dosage: UNK
     Route: 023
     Dates: start: 20180328, end: 20180328
  8. CEFUROXIME. [Suspect]
     Active Substance: CEFUROXIME
     Indication: ALLERGY TEST
     Dosage: UNK
     Route: 023
     Dates: start: 20180328, end: 20180328
  9. CLOXACILLIN [Suspect]
     Active Substance: CLOXACILLIN
     Indication: ALLERGY TEST
     Dosage: UNK
     Route: 023
     Dates: start: 20180328, end: 20180328
  10. FLUOXETINE [Concomitant]
     Active Substance: FLUOXETINE HYDROCHLORIDE
     Indication: PRODUCT USED FOR UNKNOWN INDICATION
     Dosage: UNK
  11. CEFAZOLINE                         /00288501/ [Suspect]
     Active Substance: CEFAZOLIN
     Indication: ALLERGY TEST
     Dosage: UNK
     Route: 023
     Dates: start: 20180328, end: 20180328
  12. CEFOTAXIME SODIUM [Suspect]
     Active Substance: CEFOTAXIME SODIUM
     Indication: ALLERGY TEST
     Dosage: UNK
     Route: 023
     Dates: start: 20180328, end: 20180328
  13. SERESTA [Concomitant]
     Active Substance: OXAZEPAM
     Indication: PRODUCT USED FOR UNKNOWN INDICATION
     Dosage: UNK

REACTIONS (1)
  - Angioedema [Recovered/Resolved]

NARRATIVE: CASE EVENT DATE: 20180328
